FAERS Safety Report 7642406-3 (Version None)
Quarter: 2011Q3

REPORT INFORMATION
  Report Type: 
  Country: None (occurrence: None)
  Receive Date: 20110728
  Receipt Date: 20100813
  Transmission Date: 20111222
  Serious: No
  Sender: FDA-Public Use
  Company Number: US-MYLANLABS-2010S1014761

PATIENT
  Sex: Female

DRUGS (2)
  1. TRIAMTERENE [Suspect]
     Route: 048
  2. LEVOTHYROXINE SODIUM [Suspect]
     Route: 048

REACTIONS (5)
  - SINUS BRADYCARDIA [None]
  - BACK INJURY [None]
  - ABDOMINAL PAIN UPPER [None]
  - AMNESIA [None]
  - NODULE [None]
